FAERS Safety Report 14881863 (Version 8)
Quarter: 2018Q3

REPORT INFORMATION
  Report Type: Spontaneous
  Country: PL (occurrence: PL)
  Receive Date: 20180511
  Receipt Date: 20180927
  Transmission Date: 20181010
  Serious: Yes (Other)
  Sender: FDA-Public Use
  Company Number: PL-PFIZER INC-2018189837

PATIENT
  Age: 65 Year
  Sex: Female
  Weight: 58 kg

DRUGS (6)
  1. MEDROL [Suspect]
     Active Substance: METHYLPREDNISOLONE
     Indication: BACK PAIN
     Dosage: 4 MG, 1X/DAY 1X1 TABL
     Route: 048
     Dates: start: 20110930
  2. MEDROL [Suspect]
     Active Substance: METHYLPREDNISOLONE
     Indication: CHRONIC OBSTRUCTIVE PULMONARY DISEASE
     Dosage: 4 MG, 1/2 TABL
     Route: 048
     Dates: start: 2013
  3. KETONAL [Concomitant]
     Active Substance: KETOPROFEN
     Indication: PAIN
     Dosage: UNK
  4. MEDROL [Suspect]
     Active Substance: METHYLPREDNISOLONE
     Indication: ASTHMA
     Dosage: 0.5 MG, ALTERNATE DAY (EVERY 2 DAYS)
  5. INSULIN [Concomitant]
     Active Substance: INSULIN NOS
     Dosage: UNK
  6. MEDROL [Suspect]
     Active Substance: METHYLPREDNISOLONE
     Indication: OVERLAP SYNDROME
     Dosage: 0.5 TABLET, 1X/DAY

REACTIONS (15)
  - Exophthalmos [Unknown]
  - Condition aggravated [Unknown]
  - Weight decreased [Unknown]
  - Trichorrhexis [Not Recovered/Not Resolved]
  - Cataract [Not Recovered/Not Resolved]
  - Drug dependence [Unknown]
  - Soft tissue disorder [Not Recovered/Not Resolved]
  - Intentional product misuse [Unknown]
  - Diabetes mellitus [Not Recovered/Not Resolved]
  - Musculoskeletal pain [Not Recovered/Not Resolved]
  - Osteoporosis [Not Recovered/Not Resolved]
  - Blood glucose increased [Unknown]
  - Articular calcification [Unknown]
  - Muscle atrophy [Not Recovered/Not Resolved]
  - Pain [Unknown]

NARRATIVE: CASE EVENT DATE: 2015
